FAERS Safety Report 5361040-1 (Version None)
Quarter: 2007Q2

REPORT INFORMATION
  Report Type: 
  Country: None (occurrence: None)
  Receive Date: 20070618
  Receipt Date: 20070606
  Transmission Date: 20071010
  Serious: Yes (Other)
  Sender: FDA-Public Use
  Company Number: FR-PFIZER INC-2007046995

PATIENT
  Age: 84 Year
  Sex: Female

DRUGS (4)
  1. LYRICA [Suspect]
     Indication: HERPES ZOSTER OPHTHALMIC
  2. LYRICA [Suspect]
     Indication: PAIN
  3. STABLON [Concomitant]
  4. PARACETAMOL [Concomitant]

REACTIONS (2)
  - FALL [None]
  - WRIST FRACTURE [None]
